FAERS Safety Report 6902532-0 (Version None)
Quarter: 2010Q3

REPORT INFORMATION
  Report Type: 
  Country: None (occurrence: None)
  Receive Date: 20100730
  Receipt Date: 20100721
  Transmission Date: 20110219
  Serious: Yes (Other)
  Sender: FDA-Public Use
  Company Number: 2010US000172

PATIENT
  Age: 51 Year
  Sex: Female

DRUGS (5)
  1. AMBISOME [Suspect]
     Indication: BRONCHOPULMONARY ASPERGILLOSIS
     Dosage: 150 MG, 100MG UID/QD, IV NOS
     Route: 042
     Dates: start: 20091210, end: 20091225
  2. AMBISOME [Suspect]
     Indication: BRONCHOPULMONARY ASPERGILLOSIS
     Dosage: 150 MG, 100MG UID/QD, IV NOS
     Route: 042
     Dates: start: 20091126
  3. MYCAMINE [Concomitant]
  4. RED BLOOD CELLS [Concomitant]
  5. HUMAN SERUM ALBUMIN (ALBUMIN) [Concomitant]

REACTIONS (1)
  - PANCREATITIS ACUTE [None]
